FAERS Safety Report 7346893-X (Version None)
Quarter: 2011Q1

REPORT INFORMATION
  Report Type: 
  Country: None (occurrence: None)
  Receive Date: 20110302
  Receipt Date: 20110110
  Transmission Date: 20110831
  Serious: No
  Sender: FDA-Public Use
  Company Number: 2011-00008

PATIENT
  Age: 56 Year
  Sex: Female
  Weight: 72.5755 kg

DRUGS (3)
  1. MULTI-VITAMIN [Concomitant]
  2. ZICAM COLD REMEDY RAPIDMELTS WITH VITAMIN C [Suspect]
     Dosage: AS DIRECTED, 4 DAYS
     Dates: start: 20101231, end: 20110103
  3. LEVOTHYROXINE (GENERIC FOR SYNTHROID) [Concomitant]

REACTIONS (2)
  - AGEUSIA [None]
  - ANOSMIA [None]
